FAERS Safety Report 8459654-5 (Version None)
Quarter: 2012Q2

REPORT INFORMATION
  Report Type: 
  Country: None (occurrence: None)
  Receive Date: 20120622
  Receipt Date: 20120612
  Transmission Date: 20120825
  Serious: Yes (Hospitalization)
  Sender: FDA-Public Use
  Company Number: AU-JNJFOC-20120604786

PATIENT
  Age: 19 Year
  Sex: Male
  Weight: 70 kg

DRUGS (3)
  1. REMICADE [Suspect]
     Route: 042
     Dates: start: 20111101
  2. REMICADE [Suspect]
     Indication: COLITIS ULCERATIVE
     Route: 042
     Dates: start: 20111101
  3. IMURAN [Concomitant]
     Indication: COLITIS ULCERATIVE
     Dates: start: 20111101, end: 20120401

REACTIONS (3)
  - NEUTROPENIA [None]
  - B-CELL LYMPHOMA [None]
  - PNEUMONIA MYCOPLASMAL [None]
